FAERS Safety Report 4589207-0 (Version None)
Quarter: 2005Q1

REPORT INFORMATION
  Report Type: 
  Country: None (occurrence: None)
  Receive Date: 20050216
  Receipt Date: 20050216
  Transmission Date: 20050727
  Serious: Yes (Hospitalization)
  Sender: FDA-Public Use
  Company Number: None

PATIENT
  Age: 82 Year
  Sex: Male
  Weight: 70 kg

DRUGS (15)
  1. PACLITAXEL [Suspect]
     Indication: BLADDER CANCER
     Dosage: 200 MG/M2, D1, IV
     Route: 042
     Dates: start: 20041108
  2. CARBOPLATIN [Suspect]
     Indication: BLADDER CANCER
     Dosage: 325 MG, D1, IV
     Route: 042
     Dates: start: 20041108
  3. GEMCITABINE [Suspect]
     Indication: BLADDER CANCER
     Dosage: 1500 MG, D1, 8, IV
     Route: 042
     Dates: start: 20041108
  4. GEMCITABINE [Suspect]
     Indication: BLADDER CANCER
     Dosage: 1500 MG, D1, 8, IV
     Route: 042
     Dates: start: 20041115
  5. GRANISETRON [Concomitant]
  6. DEXAMETHASONE [Concomitant]
  7. DIPHENHYDRAMINE HCL [Concomitant]
  8. FAMOTIDINE [Concomitant]
  9. ATENOLOL [Concomitant]
  10. PRINIVIL [Concomitant]
  11. COMPAZINE [Concomitant]
  12. MEGACE [Concomitant]
  13. COLACE [Concomitant]
  14. VICODIN [Concomitant]
  15. ZOLOFT [Concomitant]

REACTIONS (20)
  - AGGRESSION [None]
  - BLOOD SODIUM DECREASED [None]
  - CATHETER RELATED COMPLICATION [None]
  - CHEST WALL ABSCESS [None]
  - CONFUSIONAL STATE [None]
  - CULTURE URINE POSITIVE [None]
  - HAEMATURIA [None]
  - HAEMOGLOBIN DECREASED [None]
  - HYPOKALAEMIA [None]
  - INJECTION SITE CELLULITIS [None]
  - INJECTION SITE PHLEBITIS [None]
  - LEUKOPENIA [None]
  - PCO2 DECREASED [None]
  - PSYCHOTIC DISORDER [None]
  - SEPSIS [None]
  - STAPHYLOCOCCAL INFECTION [None]
  - TACHYCARDIA [None]
  - THROMBOCYTOPENIA [None]
  - THROMBOSIS [None]
  - WOUND INFECTION STAPHYLOCOCCAL [None]
